FAERS Safety Report 25138459 (Version 3)
Quarter: 2025Q2

REPORT INFORMATION
  Report Type: Report from Study
  Country: EG (occurrence: EG)
  Receive Date: 20250330
  Receipt Date: 20250502
  Transmission Date: 20250716
  Serious: Yes (Hospitalization, Other)
  Sender: NOVARTIS
  Company Number: EG-002147023-NVSC2025EG051804

PATIENT
  Sex: Male
  Weight: 86 kg

DRUGS (9)
  1. ENTRESTO [Suspect]
     Active Substance: SACUBITRIL\VALSARTAN
     Indication: Cardiac failure
     Dosage: 200 MG, BID (START DATE: 5 YEARS AGO) (CONCENTRATION: 200 MG)
     Route: 048
     Dates: end: 20240919
  2. ENTRESTO [Suspect]
     Active Substance: SACUBITRIL\VALSARTAN
     Dosage: 1.5 DOSAGE FORM, QD (CONCENTRATION: 50 MG) ((1/2 TABLET AT MORNING,1 TABLET AT EVENING)
     Route: 048
     Dates: start: 202410, end: 202412
  3. ENTRESTO [Suspect]
     Active Substance: SACUBITRIL\VALSARTAN
     Dosage: 50 MG, BID (CONCENTRATION: 50 MG)
     Route: 048
     Dates: start: 202412, end: 202501
  4. ENTRESTO [Suspect]
     Active Substance: SACUBITRIL\VALSARTAN
     Dosage: 100 MG, BID (CONCENTRATION: 100 MG)
     Route: 048
     Dates: start: 202501
  5. IVABRADINE [Concomitant]
     Active Substance: IVABRADINE
     Indication: Cardiac disorder
     Dosage: 7.5 MG, BID (START DATE: 7 YEARS AGO, END DATE: ONGOING)
     Route: 048
  6. Vaxato [Concomitant]
     Indication: Antiplatelet therapy
     Dosage: 20 MG, QD (START DATE: 2 OR 3 YEARS AGO, END DATE: ONGOING)
     Route: 048
  7. ASPIRIN [Concomitant]
     Active Substance: ASPIRIN
     Indication: Antiplatelet therapy
     Dosage: 100 MG, BID (START DATE: 4 OR 5 YEARS AGO, END DATE: 2 OR 3 YEARS AGO)
     Route: 048
  8. TORSEMIDE [Concomitant]
     Active Substance: TORSEMIDE
     Indication: Diuretic therapy
     Dosage: 20 MG, QD (START DATE: 6 MONTHS AGO)
     Route: 048
  9. ATORVASTATIN CALCIUM [Concomitant]
     Active Substance: ATORVASTATIN CALCIUM
     Indication: Hypercholesterolaemia
     Dosage: 20 MG, QD (START DATE: 6 MONTHS AGO)
     Route: 048

REACTIONS (12)
  - Fluid retention [Not Recovered/Not Resolved]
  - Coronavirus infection [Recovered/Resolved]
  - Hypotension [Recovering/Resolving]
  - Lung disorder [Unknown]
  - Diabetes mellitus [Recovering/Resolving]
  - Ejection fraction decreased [Not Recovered/Not Resolved]
  - Pneumonia [Not Recovered/Not Resolved]
  - Influenza [Not Recovered/Not Resolved]
  - Off label use [Unknown]
  - General physical health deterioration [Unknown]
  - Drug ineffective [Unknown]
  - Wrong technique in product usage process [Unknown]

NARRATIVE: CASE EVENT DATE: 20200101
